FAERS Safety Report 4562194-7 (Version None)
Quarter: 2005Q1

REPORT INFORMATION
  Report Type: 
  Country: None (occurrence: None)
  Receive Date: 20050121
  Receipt Date: 20050104
  Transmission Date: 20050727
  Serious: Yes (Other)
  Sender: FDA-Public Use
  Company Number: US_0405102840

PATIENT
  Age: 48 Year
  Sex: Male
  Weight: 79 kg

DRUGS (11)
  1. ZYPREXA [Suspect]
     Dosage: 5 MG/1 DAY
     Route: 048
  2. ZOLOFT [Concomitant]
  3. DESYREL [Concomitant]
  4. REBETRON [Concomitant]
  5. INTERFERON [Concomitant]
  6. RIBAVIRIN [Concomitant]
  7. DOLOBID [Concomitant]
  8. IMFERON (IRON DEXTRAN) [Concomitant]
  9. NEXIUM [Concomitant]
  10. IBUPROFEN [Concomitant]
  11. TRAMADOL HCL [Concomitant]

REACTIONS (18)
  - AGGRESSION [None]
  - ALPHA 1 FOETOPROTEIN INCREASED [None]
  - ANAEMIA [None]
  - BLOOD ALBUMIN DECREASED [None]
  - DELINQUENCY [None]
  - GASTRITIS [None]
  - HEPATIC CIRRHOSIS [None]
  - HEPATIC STEATOSIS [None]
  - HEPATITIS C [None]
  - HIATUS HERNIA [None]
  - LIVER FUNCTION TEST ABNORMAL [None]
  - MACROCYTOSIS [None]
  - MANIA [None]
  - OESOPHAGITIS [None]
  - PLATELET COUNT DECREASED [None]
  - PROTEIN TOTAL DECREASED [None]
  - VARICES OESOPHAGEAL [None]
  - WHITE BLOOD CELL COUNT DECREASED [None]
